FAERS Safety Report 12198075 (Version 1)
Quarter: 2016Q1

REPORT INFORMATION
  Report Type: Spontaneous
  Country: US (occurrence: None)
  Receive Date: 20160321
  Receipt Date: 20160321
  Transmission Date: 20160526
  Serious: Yes (Hospitalization, Disabling)
  Sender: FDA-Public Use
  Company Number: None

PATIENT
  Age: 41 Year
  Sex: Female
  Weight: 54.43 kg

DRUGS (3)
  1. OTC OMEPRAZOLE VARIOUS [Suspect]
     Active Substance: OMEPRAZOLE
     Indication: DYSPEPSIA
     Dosage: 1 PILL ONCE DAILY TAKEN BY MOUTH
     Route: 048
     Dates: start: 20120301, end: 20160320
  2. CALCIUM + VITAMIN D [Concomitant]
     Active Substance: CALCIUM\VITAMIN D
  3. OTC OMEPRAZOLE VARIOUS [Suspect]
     Active Substance: OMEPRAZOLE
     Indication: GASTROOESOPHAGEAL REFLUX DISEASE
     Dosage: 1 PILL ONCE DAILY TAKEN BY MOUTH
     Route: 048
     Dates: start: 20120301, end: 20160320

REACTIONS (4)
  - Wrist fracture [None]
  - Spinal fracture [None]
  - Ankle fracture [None]
  - Pathological fracture [None]

NARRATIVE: CASE EVENT DATE: 20151210
